FAERS Safety Report 5958887-7 (Version None)
Quarter: 2008Q4

REPORT INFORMATION
  Report Type: 
  Country: None (occurrence: None)
  Receive Date: 20081118
  Receipt Date: 20081103
  Transmission Date: 20090506
  Serious: Yes (Hospitalization, Disabling)
  Sender: FDA-Public Use
  Company Number: 2008002755

PATIENT
  Age: 75 Year
  Sex: Male
  Weight: 54 kg

DRUGS (2)
  1. ERLOTINIB (ERLOTINIB) (TABLET) (ERLOTINIB) [Suspect]
     Indication: NON-SMALL CELL LUNG CANCER
     Dosage: (150 MG, QD), ORAL
     Route: 048
     Dates: start: 20081003
  2. BEVACIZUMAB (INJECTION FOR INFUSION) [Suspect]
     Indication: NON-SMALL CELL LUNG CANCER
     Dosage: (900, Q3W), INTRAVENOUS
     Route: 042
     Dates: start: 20071101

REACTIONS (10)
  - BLOOD UREA INCREASED [None]
  - CONFUSIONAL STATE [None]
  - CSF TEST ABNORMAL [None]
  - DECREASED APPETITE [None]
  - INFECTION PROTOZOAL [None]
  - MEMORY IMPAIRMENT [None]
  - MENTAL STATUS CHANGES [None]
  - METASTASES TO CENTRAL NERVOUS SYSTEM [None]
  - STREPTOCOCCAL BACTERAEMIA [None]
  - SYPHILIS TEST POSITIVE [None]
